FAERS Safety Report 6430442-4 (Version None)
Quarter: 2009Q4

REPORT INFORMATION
  Report Type: 
  Country: None (occurrence: None)
  Receive Date: 20091106
  Receipt Date: 20091102
  Transmission Date: 20100525
  Serious: Yes (Death, Hospitalization, Disabling, Other)
  Sender: FDA-Public Use
  Company Number: PHHY2009JP20739

PATIENT
  Sex: Male

DRUGS (4)
  1. SANDIMMUNE [Suspect]
     Indication: ALLOGENIC BONE MARROW TRANSPLANTATION THERAPY
     Dosage: UNK
     Route: 042
     Dates: start: 20050127, end: 20050323
  2. FLUDARABINE PHOSPHATE [Concomitant]
     Dosage: 30 MG/M2, UNK
     Dates: start: 20050101
  3. L-PAM [Concomitant]
     Dosage: 80 MG TWICE
     Dates: start: 20050101
  4. STEROIDS NOS [Concomitant]
     Indication: GRAFT VERSUS HOST DISEASE
     Dosage: PULSE THERAPY
     Route: 048

REACTIONS (18)
  - ACUTE GRAFT VERSUS HOST DISEASE [None]
  - BONE LESION [None]
  - CHRONIC GRAFT VERSUS HOST DISEASE [None]
  - CHRONIC MYELOID LEUKAEMIA [None]
  - COLITIS [None]
  - GENERAL PHYSICAL HEALTH DETERIORATION [None]
  - LOWER LIMB FRACTURE [None]
  - MELAENA [None]
  - MYELOMA RECURRENCE [None]
  - OBLITERATIVE BRONCHIOLITIS [None]
  - PAIN IN EXTREMITY [None]
  - PLASMACYTOMA [None]
  - PNEUMONIA [None]
  - PYREXIA [None]
  - RESPIRATORY DISORDER [None]
  - SPINAL COMPRESSION FRACTURE [None]
  - THROMBOTIC MICROANGIOPATHY [None]
  - ULNA FRACTURE [None]
